FAERS Safety Report 17622301 (Version 1)
Quarter: 2020Q2

REPORT INFORMATION
  Report Type: Spontaneous
  Country: US (occurrence: US)
  Receive Date: 20200402
  Receipt Date: 20200402
  Transmission Date: 20200713
  Serious: Yes (Hospitalization)
  Sender: FDA-Public Use
  Company Number: None

PATIENT
  Sex: Female
  Weight: 94.9 kg

DRUGS (3)
  1. FEMARA [Suspect]
     Active Substance: LETROZOLE
     Dates: end: 20200218
  2. TAXOL [Concomitant]
     Active Substance: PACLITAXEL
  3. CARBOPLATIN. [Concomitant]
     Active Substance: CARBOPLATIN

REACTIONS (21)
  - Fall [None]
  - Abdominal adhesions [None]
  - Disease progression [None]
  - Constipation [None]
  - Epithelioid sarcoma [None]
  - Packed red blood cell transfusion [None]
  - Delirium [None]
  - Anaemia [None]
  - Nausea [None]
  - Metastatic neoplasm [None]
  - Diarrhoea [None]
  - Spindle cell sarcoma [None]
  - Neoplasm malignant [None]
  - Ileus [None]
  - Encephalopathy [None]
  - Pain [None]
  - Neoplasm progression [None]
  - Acute respiratory failure [None]
  - Peritonitis [None]
  - Procedural pain [None]
  - Ureteral stent insertion [None]

NARRATIVE: CASE EVENT DATE: 20200219
